FAERS Safety Report 5181523-7 (Version None)
Quarter: 2006Q4

REPORT INFORMATION
  Report Type: 
  Country: None (occurrence: None)
  Receive Date: 20061220
  Receipt Date: 20060125
  Transmission Date: 20070319
  Serious: Yes (Other)
  Sender: FDA-Public Use
  Company Number: US-GLAXOSMITHKLINE-A0590854A

PATIENT
  Age: 69 Year
  Sex: Female

DRUGS (3)
  1. COMMIT [Suspect]
     Dosage: 2MG UNKNOWN
  2. COMMIT [Suspect]
     Dosage: 4MG SEE DOSAGE TEXT
  3. NICODERM CQ [Suspect]

REACTIONS (6)
  - APPLICATION SITE REACTION [None]
  - DERMATITIS CONTACT [None]
  - DRUG ABUSER [None]
  - IRRITABILITY [None]
  - NERVOUSNESS [None]
  - NICOTINE DEPENDENCE [None]
